FAERS Safety Report 8354371-4 (Version None)
Quarter: 2012Q2

REPORT INFORMATION
  Report Type: 
  Country: None (occurrence: None)
  Receive Date: 20120511
  Receipt Date: 20120507
  Transmission Date: 20120825
  Serious: Yes (Hospitalization)
  Sender: FDA-Public Use
  Company Number: MY-ABBOTT-12P-101-0933298-00

PATIENT

DRUGS (3)
  1. PROPRANOLOL [Suspect]
     Indication: SINUS TACHYCARDIA
  2. GANATON [Suspect]
     Indication: NAUSEA
     Route: 048
  3. GANATON [Suspect]
     Indication: VOMITING

REACTIONS (2)
  - SINUS TACHYCARDIA [None]
  - ATRIOVENTRICULAR BLOCK [None]
